FAERS Safety Report 8326514-X (Version None)
Quarter: 2012Q2

REPORT INFORMATION
  Report Type: 
  Country: None (occurrence: None)
  Receive Date: 20120501
  Receipt Date: 20120427
  Transmission Date: 20120825
  Serious: Yes (Death)
  Sender: FDA-Public Use
  Company Number: US-B.I. PHARMACEUTICALS,INC./RIDGEFIELD-2012-BP-09433BP

PATIENT
  Sex: Male

DRUGS (4)
  1. CAPTOPRIL [Concomitant]
  2. PLAVIX [Suspect]
     Dosage: 75 MG
  3. ASPIRIN [Suspect]
     Dosage: 80 MG
  4. PRADAXA [Suspect]
     Dosage: 300 MG
     Route: 048
     Dates: end: 20120422

REACTIONS (1)
  - GASTROINTESTINAL HAEMORRHAGE [None]
